FAERS Safety Report 9919328 (Version 3)
Quarter: 2014Q2

REPORT INFORMATION
  Report Type: Report from Study
  Country: GB (occurrence: GB)
  Receive Date: 20140224
  Receipt Date: 20140515
  Transmission Date: 20141212
  Serious: Yes (Hospitalization)
  Sender: FDA-Public Use
  Company Number: GB-009507513-1402USA009762

PATIENT
  Age: 72 Year
  Sex: Female

DRUGS (4)
  1. ALENDRONATE SODIUM [Suspect]
     Indication: OSTEOPOROSIS
     Dosage: 70 MG, QW
     Route: 048
     Dates: start: 20080220
  2. CALCIUM (UNSPECIFIED) [Concomitant]
     Indication: ROUTINE HEALTH MAINTENANCE
     Dosage: 500 MG, BID
     Dates: start: 20080116
  3. CHOLECALCIFEROL [Concomitant]
     Indication: ROUTINE HEALTH MAINTENANCE
     Dosage: 10 MICROGRAM, BID
     Dates: start: 20080116
  4. DICLOFENAC POTASSIUM [Concomitant]
     Indication: DRUG THERAPY
     Dosage: 40MG, DAYS DURING
     Dates: start: 20090613

REACTIONS (1)
  - Oesophagitis [Not Recovered/Not Resolved]
